FAERS Safety Report 6864734-1 (Version None)
Quarter: 2010Q3

REPORT INFORMATION
  Report Type: 
  Country: None (occurrence: None)
  Receive Date: 20100721
  Receipt Date: 20080401
  Transmission Date: 20110219
  Serious: No
  Sender: FDA-Public Use
  Company Number: US-PFIZER INC-2008030524

PATIENT
  Sex: Female
  Weight: 54.4 kg

DRUGS (5)
  1. CHANTIX [Suspect]
     Indication: SMOKING CESSATION THERAPY
     Route: 048
     Dates: start: 20080309
  2. KLONOPIN [Concomitant]
     Indication: TEMPOROMANDIBULAR JOINT SYNDROME
  3. KLONOPIN [Concomitant]
     Indication: BRUXISM
  4. PROZAC [Concomitant]
  5. FIORINAL [Concomitant]
     Indication: MIGRAINE

REACTIONS (3)
  - ABNORMAL DREAMS [None]
  - EMOTIONAL DISORDER [None]
  - HEART RATE INCREASED [None]
